FAERS Safety Report 6197100-5 (Version None)
Quarter: 2009Q2

REPORT INFORMATION
  Report Type: 
  Country: None (occurrence: None)
  Receive Date: 20090518
  Receipt Date: 20090518
  Transmission Date: 20091009
  Serious: Yes (Other)
  Sender: FDA-Public Use
  Company Number: None

PATIENT
  Age: 40 Year
  Sex: Male
  Weight: 108.8633 kg

DRUGS (1)
  1. LYRICA [Suspect]
     Indication: DIABETIC NEUROPATHY
     Dosage: 75 BID PO
     Route: 048
     Dates: start: 20090501, end: 20090513

REACTIONS (3)
  - FALL [None]
  - FEELING ABNORMAL [None]
  - VERTIGO POSITIONAL [None]
